FAERS Safety Report 10209029 (Version 1)
Quarter: 2014Q2

REPORT INFORMATION
  Report Type: Report from Study
  Country: GB (occurrence: GB)
  Receive Date: 20140530
  Receipt Date: 20140530
  Transmission Date: 20141212
  Serious: Yes (Other)
  Sender: FDA-Public Use
  Company Number: GB-ABBVIE-14P-167-1240175-00

PATIENT
  Sex: Female

DRUGS (1)
  1. HUMIRA [Suspect]
     Indication: PRODUCT USED FOR UNKNOWN INDICATION
     Dates: start: 201403

REACTIONS (6)
  - Amnesia [Unknown]
  - Drug hypersensitivity [Unknown]
  - Burning sensation [Unknown]
  - Pruritus generalised [Unknown]
  - Melanocytic naevus [Unknown]
  - Rash papular [Unknown]
